FAERS Safety Report 5249826-5 (Version None)
Quarter: 2007Q1

REPORT INFORMATION
  Report Type: 
  Country: None (occurrence: None)
  Receive Date: 20070223
  Receipt Date: 20070219
  Transmission Date: 20070707
  Serious: Yes (Disabling)
  Sender: FDA-Public Use
  Company Number: 2007BL000518

PATIENT
  Age: 18 Month
  Sex: Male

DRUGS (2)
  1. MINIMS GENTAMICIN  SULPHATE (GENTAMICIN  SULPHATE) [Suspect]
     Indication: MENINGITIS
  2. ZYVOX [Suspect]
     Indication: MENINGITIS

REACTIONS (1)
  - DEAFNESS [None]
